FAERS Safety Report 26091323 (Version 1)
Quarter: 2025Q4

REPORT INFORMATION
  Report Type: Spontaneous
  Country: EU (occurrence: EU)
  Receive Date: 20251126
  Receipt Date: 20251126
  Transmission Date: 20260118
  Serious: Yes (Disabling)
  Sender: ACCORD
  Company Number: EU-MLMSERVICE-20251110-PI705530-00218-1

PATIENT
  Age: 66 Year
  Sex: Female

DRUGS (4)
  1. METHOTREXATE [Suspect]
     Active Substance: METHOTREXATE
     Indication: Felty^s syndrome
  2. CHOLECALCIFEROL [Concomitant]
     Active Substance: CHOLECALCIFEROL
     Indication: Felty^s syndrome
  3. FILGRASTIM [Concomitant]
     Active Substance: FILGRASTIM
     Indication: Felty^s syndrome
     Dosage: OCCASIONALLY
  4. FOLIC ACID [Concomitant]
     Active Substance: FOLIC ACID
     Indication: Felty^s syndrome

REACTIONS (3)
  - Stress fracture [Recovering/Resolving]
  - Bone disorder [Recovering/Resolving]
  - Off label use [Unknown]
